FAERS Safety Report 6207164-8 (Version None)
Quarter: 2009Q2

REPORT INFORMATION
  Report Type: 
  Country: None (occurrence: None)
  Receive Date: 20090528
  Receipt Date: 20090202
  Transmission Date: 20091009
  Serious: Yes (Other)
  Sender: FDA-Public Use
  Company Number: ES-PFIZER INC-2008153107

PATIENT
  Sex: Female
  Weight: 56 kg

DRUGS (11)
  1. SOLU-MODERIN [Suspect]
     Indication: MULTIPLE SCLEROSIS
     Dosage: UNK
     Dates: start: 20040801
  2. NEURONTIN [Suspect]
     Dosage: UNK
     Route: 048
     Dates: start: 20080111, end: 20080114
  3. NEURONTIN [Suspect]
     Dates: start: 20080111, end: 20080114
  4. NEURONTIN [Suspect]
     Route: 048
  5. DACORTIN [Suspect]
  6. OMEPRAZOLE [Concomitant]
  7. BOI K [Concomitant]
  8. DOGMATIL [Concomitant]
  9. REBIF [Concomitant]
     Dates: start: 20041028, end: 20080530
  10. TYSABRI [Concomitant]
  11. SEGURIL [Concomitant]

REACTIONS (13)
  - ABDOMINAL DISTENSION [None]
  - ABNORMAL LOSS OF WEIGHT [None]
  - DIZZINESS [None]
  - EUPHORIC MOOD [None]
  - FACIAL PAIN [None]
  - HEADACHE [None]
  - HYPERTENSION [None]
  - MOOD ALTERED [None]
  - MUCOSAL DRYNESS [None]
  - NUCHAL RIGIDITY [None]
  - PAIN [None]
  - PSYCHOTIC DISORDER [None]
  - SKIN STRIAE [None]
